FAERS Safety Report 4331992-7 (Version None)
Quarter: 2004Q2

REPORT INFORMATION
  Report Type: 
  Country: None (occurrence: None)
  Receive Date: 20040405
  Receipt Date: 20031016
  Transmission Date: 20050107
  Serious: No
  Sender: FDA-Public Use
  Company Number: US-GLAXOSMITHKLINE-A0430638A

PATIENT
  Age: 49 Year
  Sex: Female

DRUGS (9)
  1. SEREVENT [Suspect]
     Indication: ASTHMA
     Route: 055
     Dates: end: 20030924
  2. SEREVENT [Suspect]
     Dosage: 1PUFF TWICE PER DAY
     Route: 055
     Dates: start: 20030924
  3. ACCOLATE [Concomitant]
  4. ZYRTEC [Concomitant]
  5. LEVOTHROID [Concomitant]
  6. NASONEX [Concomitant]
  7. NEURONTIN [Concomitant]
  8. CHLOR TAB [Concomitant]
  9. ALBUTEROL [Concomitant]

REACTIONS (1)
  - RASH PRURITIC [None]
